FAERS Safety Report 18256836 (Version 5)
Quarter: 2021Q1

REPORT INFORMATION
  Report Type: Spontaneous
  Country: FR (occurrence: FR)
  Receive Date: 20200911
  Receipt Date: 20210105
  Transmission Date: 20210419
  Serious: Yes (Other)
  Sender: FDA-Public Use
  Company Number: FR-STRIDES ARCOLAB LIMITED-2020SP010884

PATIENT
  Age: 44 Year
  Sex: Female

DRUGS (3)
  1. VENLAFAXINE [Concomitant]
     Active Substance: VENLAFAXINE HYDROCHLORIDE
     Indication: NEUROPATHY PERIPHERAL
     Dosage: UNK
     Route: 065
  2. GABAPENTIN. [Suspect]
     Active Substance: GABAPENTIN
     Indication: NEUROPATHY PERIPHERAL
     Dosage: 1100 MILLIGRAM PER DAY
     Route: 065
  3. KETAMINE [Concomitant]
     Active Substance: KETAMINE
     Indication: NEUROPATHY PERIPHERAL
     Dosage: UNK, EVERY 3 MONTHS
     Route: 065

REACTIONS (12)
  - Contusion [Recovered/Resolved]
  - Coagulopathy [Recovered/Resolved]
  - Off label use [Unknown]
  - Menorrhagia [Recovered/Resolved]
  - Bleeding time prolonged [Recovered/Resolved]
  - Platelet disorder [Recovered/Resolved]
  - Haemorrhage [Recovered/Resolved]
  - Mouth haemorrhage [Recovered/Resolved]
  - Platelet aggregation decreased [Recovered/Resolved]
  - Microcytic anaemia [Recovered/Resolved]
  - Gingival bleeding [Recovered/Resolved]
  - Rectal haemorrhage [Recovered/Resolved]
